FAERS Safety Report 25639178 (Version 1)
Quarter: 2025Q3

REPORT INFORMATION
  Report Type: Spontaneous
  Country: US (occurrence: None)
  Receive Date: 20250801
  Receipt Date: 20250801
  Transmission Date: 20251020
  Serious: Yes (Other)
  Sender: FDA-CTU
  Company Number: None

PATIENT
  Age: 30 Year
  Sex: Male
  Weight: 129.73 kg

DRUGS (7)
  1. CORTICOTROPIN [Suspect]
     Active Substance: CORTICOTROPIN
     Indication: Systemic lupus erythematosus
     Dosage: 80 IU THREE TIMES A WEEK INTRAMUSCULAR ?
     Route: 030
  2. PREDNISONE [Concomitant]
     Active Substance: PREDNISONE
  3. LISINOPRIL [Concomitant]
     Active Substance: LISINOPRIL
  4. PROCARDIA [Concomitant]
     Active Substance: NIFEDIPINE
  5. CARVEDILOL [Concomitant]
     Active Substance: CARVEDILOL
  6. CELLCEPT [Concomitant]
     Active Substance: MYCOPHENOLATE MOFETIL
  7. CYCLOPHOSPHAMIDE [Concomitant]
     Active Substance: CYCLOPHOSPHAMIDE

REACTIONS (5)
  - Arthralgia [None]
  - Protein urine present [None]
  - Fatigue [None]
  - Urinary tract inflammation [None]
  - Nasopharyngitis [None]

NARRATIVE: CASE EVENT DATE: 20250801
